FAERS Safety Report 9087876 (Version 1)
Quarter: 2013Q1

REPORT INFORMATION
  Report Type: Spontaneous
  Country: DE (occurrence: DE)
  Receive Date: 20130131
  Receipt Date: 20130131
  Transmission Date: 20140127
  Serious: Yes (Disabling, Other)
  Sender: FDA-Public Use
  Company Number: DE-TEVA-376309GER

PATIENT
  Age: 77 None
  Sex: Female
  Weight: 57 kg

DRUGS (4)
  1. CARBOPLATIN [Suspect]
     Indication: BREAST CANCER
     Dosage: AUC 6
     Route: 042
     Dates: start: 20110921, end: 20111012
  2. HERCEPTIN [Concomitant]
     Indication: BREAST CANCER
     Route: 042
     Dates: start: 20110921, end: 20120912
  3. TAXOTERE [Concomitant]
     Indication: BREAST CANCER
     Route: 042
     Dates: start: 20110921, end: 20120118
  4. ANTICOAGULANT MEDICATION [Concomitant]

REACTIONS (3)
  - Sudden hearing loss [Not Recovered/Not Resolved]
  - Hypoacusis [Not Recovered/Not Resolved]
  - Toxicity to various agents [Unknown]
